FAERS Safety Report 16509455 (Version 1)
Quarter: 2019Q3

REPORT INFORMATION
  Report Type: Spontaneous
  Country: CA (occurrence: CA)
  Receive Date: 20190702
  Receipt Date: 20190702
  Transmission Date: 20191004
  Serious: Yes (Other)
  Sender: FDA-Public Use
  Company Number: CA-TEVA-2019-CA-1070715

PATIENT
  Age: 56 Year
  Sex: Male
  Weight: 90 kg

DRUGS (7)
  1. GABAPENTIN. [Suspect]
     Active Substance: GABAPENTIN
     Indication: PRODUCT USED FOR UNKNOWN INDICATION
     Route: 065
  2. PARIET [Concomitant]
     Active Substance: RABEPRAZOLE SODIUM
  3. CLONAZEPAM. [Concomitant]
     Active Substance: CLONAZEPAM
  4. MORPHINE SULFATE INJECTION 1MG/ML [Suspect]
     Active Substance: MORPHINE SULFATE
     Indication: PRODUCT USED FOR UNKNOWN INDICATION
     Route: 065
  5. REMICADE [Suspect]
     Active Substance: INFLIXIMAB
     Indication: CROHN^S DISEASE
     Route: 065
  6. ALCOHOL. [Suspect]
     Active Substance: ALCOHOL
     Indication: PRODUCT USED FOR UNKNOWN INDICATION
     Route: 065
  7. CITALOPRAM HYDROBROMIDE - BP [Concomitant]
     Active Substance: CITALOPRAM HYDROBROMIDE

REACTIONS (6)
  - Drug hypersensitivity [Not Recovered/Not Resolved]
  - Drug abuse [Not Recovered/Not Resolved]
  - Off label use [Not Recovered/Not Resolved]
  - Detoxification [Not Recovered/Not Resolved]
  - Product use issue [Not Recovered/Not Resolved]
  - Alcohol abuse [Not Recovered/Not Resolved]
